FAERS Safety Report 4887436-X (Version None)
Quarter: 2006Q1

REPORT INFORMATION
  Report Type: 
  Country: None (occurrence: None)
  Receive Date: 20060118
  Receipt Date: 20060103
  Transmission Date: 20060701
  Serious: Yes (Life-Threatening)
  Sender: FDA-Public Use
  Company Number: DSA_27608_2006

PATIENT
  Age: 40 Year
  Sex: Male

DRUGS (6)
  1. TEMESTA [Suspect]
     Indication: PSYCHOTIC DISORDER
     Dosage: DF PO
     Route: 048
  2. CLOPIXOL (DECANOATE) [Suspect]
     Indication: PSYCHOTIC DISORDER
     Dosage: DF PO
     Route: 048
  3. CLOPIXOL - SLOW RELEASE [Suspect]
     Indication: PSYCHOTIC DISORDER
     Dosage: DF IM
     Route: 030
  4. STILNOX [Suspect]
     Indication: PSYCHOTIC DISORDER
     Dosage: DF PO
     Route: 048
  5. TERCIAN [Suspect]
     Indication: PSYCHOTIC DISORDER
     Dosage: DF PO
     Route: 048
  6. TRIHEXYPHENIDYL HCL [Suspect]
     Indication: PSYCHOTIC DISORDER
     Dosage: DF PO
     Route: 048

REACTIONS (5)
  - ACUTE RESPIRATORY DISTRESS SYNDROME [None]
  - DISTURBANCE IN ATTENTION [None]
  - LARYNGOSPASM [None]
  - MIOSIS [None]
  - TONGUE SPASM [None]
